FAERS Safety Report 14719612 (Version 1)
Quarter: 2018Q2

REPORT INFORMATION
  Report Type: Spontaneous
  Country: FR (occurrence: FR)
  Receive Date: 20180405
  Receipt Date: 20180405
  Transmission Date: 20180711
  Serious: Yes (Other)
  Sender: FDA-Public Use
  Company Number: FR-MERCK KGAA-2045141

PATIENT
  Age: 49 Year
  Sex: Female

DRUGS (1)
  1. NOVOTHYROX [Suspect]
     Active Substance: LEVOTHYROXINE SODIUM
     Indication: PRODUCT USED FOR UNKNOWN INDICATION
     Dates: start: 201705, end: 20171005

REACTIONS (28)
  - Major depression [Recovered/Resolved]
  - Oedema peripheral [Recovered/Resolved]
  - Decreased interest [Recovered/Resolved]
  - Crying [Recovered/Resolved]
  - Fear [Recovered/Resolved]
  - Hypokinesia [Recovered/Resolved]
  - Low density lipoprotein increased [None]
  - Sensory disturbance [Recovered/Resolved]
  - Visual impairment [Recovered/Resolved]
  - Total cholesterol/HDL ratio decreased [None]
  - Impaired work ability [Recovered/Resolved]
  - Balance disorder [Recovered/Resolved]
  - Arrhythmia [Recovered/Resolved]
  - Dizziness [Recovered/Resolved]
  - Fatigue [Recovered/Resolved]
  - Asthenia [Recovered/Resolved]
  - Libido decreased [Recovered/Resolved]
  - Dyspepsia [Recovered/Resolved]
  - Abdominal distension [Recovered/Resolved]
  - Nausea [Recovered/Resolved]
  - Paraesthesia [Recovered/Resolved]
  - Myalgia [Recovered/Resolved]
  - Personal relationship issue [Recovered/Resolved]
  - Emotional distress [Recovered/Resolved]
  - Headache [Recovered/Resolved]
  - Weight increased [Recovered/Resolved]
  - Gamma-glutamyltransferase decreased [None]
  - Loss of personal independence in daily activities [Recovered/Resolved]

NARRATIVE: CASE EVENT DATE: 2017
